FAERS Safety Report 21800029 (Version 1)
Quarter: 2022Q4

REPORT INFORMATION
  Report Type: Spontaneous
  Country: JP (occurrence: JP)
  Receive Date: 20221230
  Receipt Date: 20221230
  Transmission Date: 20230112
  Serious: Yes (Other)
  Sender: FDA-Public Use
  Company Number: JP-PFIZER INC-PV202200133205

PATIENT
  Age: 75 Year
  Sex: Male
  Weight: 45 kg

DRUGS (4)
  1. FOSPHENYTOIN SODIUM [Interacting]
     Active Substance: FOSPHENYTOIN SODIUM
     Indication: Epilepsy
     Dosage: 330 MG,1 D
     Route: 042
     Dates: start: 20220903, end: 20220905
  2. WARFARIN [Interacting]
     Active Substance: WARFARIN
     Dosage: 2 DOSAGE FORMS,1 D
     Route: 048
     Dates: start: 20181116
  3. WARFARIN POTASSIUM [Interacting]
     Active Substance: WARFARIN POTASSIUM
     Indication: Atrial fibrillation
     Dosage: 1 DOSAGE FORMS,1 D, 2.5 MG/DAY
     Route: 048
     Dates: start: 20181129
  4. LEVETIRACETAM [Concomitant]
     Active Substance: LEVETIRACETAM
     Dosage: UNK
     Route: 048
     Dates: start: 20181111

REACTIONS (2)
  - International normalised ratio increased [Recovered/Resolved]
  - Drug interaction [Unknown]

NARRATIVE: CASE EVENT DATE: 20220905
